FAERS Safety Report 6235360-2 (Version None)
Quarter: 2009Q2

REPORT INFORMATION
  Report Type: 
  Country: None (occurrence: None)
  Receive Date: 20090615
  Receipt Date: 20090609
  Transmission Date: 20091009
  Serious: Yes (Death)
  Sender: FDA-Public Use
  Company Number: 006725

PATIENT
  Age: 18 Year

DRUGS (5)
  1. BUSULFEX [Suspect]
     Indication: STEM CELL TRANSPLANT
  2. CAMPATH [Concomitant]
  3. COTRIMOXIN (SULFAMETHOXAZOLE, TRIMETHOPRIM) [Concomitant]
  4. CYCLOPHOSPHAMIDE [Concomitant]
  5. ITRACONAZOLE [Concomitant]

REACTIONS (7)
  - ASPERGILLOMA [None]
  - ASPERGILLOSIS [None]
  - DRUG INEFFECTIVE [None]
  - MULTI-ORGAN FAILURE [None]
  - PERICARDITIS FUNGAL [None]
  - PULMONARY CONGESTION [None]
  - PULMONARY OEDEMA [None]
